FAERS Safety Report 9521662 (Version 1)
Quarter: 2013Q3

REPORT INFORMATION
  Report Type: Spontaneous
  Country: BR (occurrence: BR)
  Receive Date: 20130913
  Receipt Date: 20130913
  Transmission Date: 20140515
  Serious: Yes (Hospitalization, Other)
  Sender: FDA-Public Use
  Company Number: PHHY2013BR100901

PATIENT
  Age: 15 Year
  Sex: Male

DRUGS (2)
  1. RITALINA [Suspect]
     Indication: ATTENTION DEFICIT/HYPERACTIVITY DISORDER
     Dosage: 1 DF, A DAY
     Route: 048
  2. VENVANSE [Suspect]
     Indication: ATTENTION DEFICIT/HYPERACTIVITY DISORDER
     Dosage: 1 DF, A DAY
     Route: 048

REACTIONS (6)
  - Allergy to chemicals [Unknown]
  - Wound [Recovered/Resolved]
  - Rash [Recovered/Resolved]
  - Pruritus [Recovered/Resolved]
  - Hypersensitivity [Unknown]
  - Drug ineffective [Unknown]
